FAERS Safety Report 12278697 (Version 2)
Quarter: 2016Q2

REPORT INFORMATION
  Report Type: Report from Study
  Country: US (occurrence: US)
  Receive Date: 20160418
  Receipt Date: 20160503
  Transmission Date: 20160815
  Serious: Yes (Hospitalization, Disabling, Other)
  Sender: FDA-Public Use
  Company Number: US-ACTELION-A-US2016-131659

PATIENT
  Age: 68 Year
  Sex: Female

DRUGS (18)
  1. JANUVIA [Concomitant]
     Active Substance: SITAGLIPTIN PHOSPHATE
  2. FUROSEMIDE. [Concomitant]
     Active Substance: FUROSEMIDE
     Dosage: 20 MG, QD
  3. GABAPENTIN. [Concomitant]
     Active Substance: GABAPENTIN
     Dosage: 400 MG, UNK
  4. MACITENTAN [Suspect]
     Active Substance: MACITENTAN
     Indication: PULMONARY ARTERIAL HYPERTENSION
     Dosage: UNK, QD
     Route: 048
     Dates: start: 20140213
  5. LANTUS [Concomitant]
     Active Substance: INSULIN GLARGINE
  6. PROFERRIN-FORTE [Concomitant]
     Dosage: 12-1MG QD
  7. IRON FOLIC [Concomitant]
  8. METFORMIN [Concomitant]
     Active Substance: METFORMIN HYDROCHLORIDE
     Dosage: 1000 MG, BID
  9. CARVEDILOL. [Concomitant]
     Active Substance: CARVEDILOL
  10. SIMVASTATIN. [Concomitant]
     Active Substance: SIMVASTATIN
  11. CLARITIN [Concomitant]
     Active Substance: LORATADINE
     Dosage: 10 MG, PRN
  12. VITAMIN B COMPLEX [Concomitant]
     Active Substance: CYANOCOBALAMIN\DEXPANTHENOL\NIACINAMIDE\PYRIDOXINE HYDROCHLORIDE\RIBOFLAVIN 5^-PHOSPHATE SODIUM\THIAMINE HYDROCHLORIDE\VITAMIN B COMPLEX
     Dosage: UNK, QD
  13. LISINOPRIL. [Concomitant]
     Active Substance: LISINOPRIL
     Dosage: 40 MG, QD
  14. FLUTICASONE [Concomitant]
     Active Substance: FLUTICASONE\FLUTICASONE PROPIONATE
  15. HEMATON [Concomitant]
     Dosage: 150-1MG, QD
  16. IRON [Concomitant]
     Active Substance: IRON
  17. VITAMIN D3 [Concomitant]
     Active Substance: CHOLECALCIFEROL
     Dosage: 35000 UNK, 3/WEEK
  18. PROCRIT [Concomitant]
     Active Substance: ERYTHROPOIETIN
     Dosage: 40000 U/ML, UNK

REACTIONS (10)
  - Anaemia [Recovering/Resolving]
  - Face injury [Recovering/Resolving]
  - Fall [Recovering/Resolving]
  - Arthralgia [Recovering/Resolving]
  - Walking disability [Recovering/Resolving]
  - Haemoglobin decreased [Recovering/Resolving]
  - Injury [Recovering/Resolving]
  - Hair injury [Recovering/Resolving]
  - Packed red blood cell transfusion [Recovering/Resolving]
  - Oedema peripheral [Recovering/Resolving]

NARRATIVE: CASE EVENT DATE: 20160207
